FAERS Safety Report 5239072-3 (Version None)
Quarter: 2007Q1

REPORT INFORMATION
  Report Type: 
  Country: None (occurrence: None)
  Receive Date: 20061208
  Receipt Date: 20050427
  Transmission Date: 20070707
  Serious: Yes (Other)
  Sender: FDA-Public Use
  Company Number: 2005UW06570

PATIENT
  Age: 40 Year
  Sex: Male

DRUGS (4)
  1. CRESTOR [Suspect]
     Dosage: 20 MG PO
     Route: 048
     Dates: start: 20030101
  2. CRESTOR [Suspect]
     Dosage: 10 MG PO
     Route: 048
  3. CRESTOR [Suspect]
     Dosage: 5 MG PO
     Route: 048
  4. ASPIRIN [Concomitant]

REACTIONS (2)
  - BLOOD CHOLESTEROL ABNORMAL [None]
  - HAEMATURIA [None]
